FAERS Safety Report 13263833 (Version 1)
Quarter: 2017Q1

REPORT INFORMATION
  Report Type: Spontaneous
  Country: US (occurrence: US)
  Receive Date: 20170222
  Receipt Date: 20170222
  Transmission Date: 20170428
  Serious: Yes (Hospitalization)
  Sender: FDA-Public Use
  Company Number: None

PATIENT
  Age: 42 Year
  Sex: Male
  Weight: 72 kg

DRUGS (3)
  1. ESCITALOPRAM [Concomitant]
     Active Substance: ESCITALOPRAM OXALATE
  2. ATRIPLA [Suspect]
     Active Substance: EFAVIRENZ\EMTRICITABINE\TENOFOVIR DISOPROXIL FUMARATE
     Indication: HIV INFECTION
     Dosage: QUANTITY:30 OUNCE(S);?
     Route: 048
     Dates: start: 20091019
  3. LISINOPRIL. [Suspect]
     Active Substance: LISINOPRIL

REACTIONS (3)
  - Nervous system disorder [None]
  - Panic attack [None]
  - Hypoaesthesia [None]

NARRATIVE: CASE EVENT DATE: 20150812
